FAERS Safety Report 16811641 (Version 2)
Quarter: 2019Q3

REPORT INFORMATION
  Report Type: Spontaneous
  Country: JP (occurrence: CA)
  Receive Date: 20190916
  Receipt Date: 20190919
  Transmission Date: 20191005
  Serious: Yes (Hospitalization, Other)
  Sender: FDA-Public Use
  Company Number: JP-SHIRE-CA201929004AA

PATIENT
  Age: 3 Decade
  Sex: Female

DRUGS (6)
  1. CYMERIN [Concomitant]
     Active Substance: RANIMUSTINE
     Indication: ESSENTIAL THROMBOCYTHAEMIA
     Dosage: UNK
     Route: 065
     Dates: start: 2001, end: 2001
  2. CAFERGOT [CAFFEINE;ERGOTAMINE TARTRATE] [Concomitant]
     Indication: MIGRAINE
     Dosage: UNK
     Dates: start: 1998, end: 1998
  3. AGRYLIN [Suspect]
     Active Substance: ANAGRELIDE HYDROCHLORIDE
     Indication: ESSENTIAL THROMBOCYTHAEMIA
     Dosage: UNK UNK, UNKNOWN
     Route: 048
     Dates: start: 20010928
  4. BUFFERIN LOW-DOSE [Concomitant]
     Indication: ESSENTIAL THROMBOCYTHAEMIA
     Dosage: UNK
     Route: 065
  5. BUFFERIN LOW-DOSE [Concomitant]
     Indication: HEADACHE
  6. HYDREA [Suspect]
     Active Substance: HYDROXYUREA
     Indication: ESSENTIAL THROMBOCYTHAEMIA
     Dosage: UNK
     Route: 065
     Dates: start: 2002, end: 2002

REACTIONS (11)
  - Physical deconditioning [Recovered/Resolved]
  - Pancreatitis [Recovered/Resolved]
  - Face oedema [Recovered/Resolved]
  - Malaise [Recovered/Resolved]
  - Abdominal discomfort [Recovered/Resolved]
  - Intestinal obstruction [Recovered/Resolved]
  - Abdominal pain [Recovered/Resolved]
  - Pyrexia [Recovered/Resolved]
  - Nausea [Recovered/Resolved]
  - Chest pain [Not Recovered/Not Resolved]
  - Epistaxis [Recovered/Resolved]

NARRATIVE: CASE EVENT DATE: 2003
